FAERS Safety Report 7302856-1 (Version None)
Quarter: 2011Q1

REPORT INFORMATION
  Report Type: 
  Country: None (occurrence: None)
  Receive Date: 20110218
  Receipt Date: 20110214
  Transmission Date: 20110831
  Serious: Yes (Hospitalization)
  Sender: FDA-Public Use
  Company Number: JP-ABBOTT-11P-087-0703637-00

PATIENT
  Sex: Female

DRUGS (3)
  1. HUMIRA [Suspect]
     Indication: CROHN'S DISEASE
     Route: 058
     Dates: start: 20110117, end: 20110117
  2. HUMIRA [Suspect]
     Route: 058
     Dates: start: 20110131, end: 20110131
  3. HUMIRA [Suspect]
     Route: 058
     Dates: end: 20110131

REACTIONS (5)
  - VOMITING [None]
  - SUBILEUS [None]
  - PANCREATITIS ACUTE [None]
  - ABDOMINAL PAIN [None]
  - PYREXIA [None]
